FAERS Safety Report 21597556 (Version 1)
Quarter: 2022Q4

REPORT INFORMATION
  Report Type: Spontaneous
  Country: DE (occurrence: DE)
  Receive Date: 20221115
  Receipt Date: 20221115
  Transmission Date: 20230112
  Serious: Yes (Hospitalization)
  Sender: FDA-Public Use
  Company Number: DE-ADRED-08094-01

PATIENT
  Age: 54 Year
  Sex: Male
  Weight: 90 kg

DRUGS (3)
  1. DOXYCYCLINE [Suspect]
     Active Substance: DOXYCYCLINE
     Indication: Arthropod bite
     Dosage: TAKEN FOR THIRTY DAYS UP TO THIRD OF JULY
     Route: 048
     Dates: end: 20210703
  2. CHOLECALCIFEROL [Concomitant]
     Active Substance: CHOLECALCIFEROL
     Dosage: 20000 IU, ONE ON SUNDAYS
     Route: 048
  3. GINKGO [Concomitant]
     Active Substance: GINKGO
     Dosage: 120 MG, 1-0-0-0
     Route: 048

REACTIONS (6)
  - Diverticulitis [Unknown]
  - Mucous stools [Unknown]
  - Abdominal pain lower [Unknown]
  - Diarrhoea haemorrhagic [Unknown]
  - Headache [Unknown]
  - Diarrhoea [Unknown]
